FAERS Safety Report 11514591 (Version 3)
Quarter: 2015Q4

REPORT INFORMATION
  Report Type: Report from Study
  Country: US (occurrence: US)
  Receive Date: 20150916
  Receipt Date: 20151016
  Transmission Date: 20160304
  Serious: Yes (Death, Hospitalization)
  Sender: FDA-Public Use
  Company Number: US-ACTELION-A-NJ2015-123317

PATIENT
  Age: 73 Year
  Sex: Male

DRUGS (3)
  1. TYVASO [Concomitant]
     Active Substance: TREPROSTINIL
     Indication: PULMONARY ARTERIAL HYPERTENSION
     Dosage: 4 X DAILY
     Route: 055
  2. MACITENTAN [Suspect]
     Active Substance: MACITENTAN
     Indication: PULMONARY ARTERIAL HYPERTENSION
     Dosage: UNK
     Route: 048
     Dates: start: 20150801, end: 20150825
  3. SILDENAFIL. [Concomitant]
     Active Substance: SILDENAFIL
     Indication: PULMONARY ARTERIAL HYPERTENSION
     Dosage: 20 MG, TID
     Route: 048

REACTIONS (15)
  - Pulmonary hypertension [Fatal]
  - Cardiac failure congestive [Fatal]
  - Disease progression [Fatal]
  - Hypoxia [Fatal]
  - Acute kidney injury [Fatal]
  - Syncope [Fatal]
  - Fluid retention [Fatal]
  - Asthenia [Recovered/Resolved]
  - Hypotension [Fatal]
  - Fatigue [Fatal]
  - Lethargy [Recovered/Resolved]
  - Dyspnoea [Recovered/Resolved]
  - Fluid overload [Fatal]
  - Respiratory failure [Recovered/Resolved]
  - Exercise tolerance decreased [Recovered/Resolved]

NARRATIVE: CASE EVENT DATE: 20150803
